FAERS Safety Report 20883429 (Version 1)
Quarter: 2022Q2

REPORT INFORMATION
  Report Type: Spontaneous
  Country: US (occurrence: US)
  Receive Date: 20220527
  Receipt Date: 20220527
  Transmission Date: 20220720
  Serious: No
  Sender: FDA-Public Use
  Company Number: US-ALKERMES INC.-ALK-2022-002487

PATIENT
  Sex: Male

DRUGS (1)
  1. VIVITROL [Suspect]
     Active Substance: NALTREXONE
     Indication: Product used for unknown indication
     Dosage: 380 MILLIGRAM, QMO
     Route: 030

REACTIONS (5)
  - Wrong technique in product usage process [Recovered/Resolved]
  - Product administered at inappropriate site [Recovered/Resolved]
  - Intentional product misuse [Recovered/Resolved]
  - Injection site reaction [Unknown]
  - Injection site injury [Unknown]
